FAERS Safety Report 8584413-2 (Version None)
Quarter: 2012Q3

REPORT INFORMATION
  Report Type: 
  Country: None (occurrence: None)
  Receive Date: 20120810
  Receipt Date: 20120420
  Transmission Date: 20120928
  Serious: No
  Sender: FDA-Public Use
  Company Number: US-009507513-2012SP025940

PATIENT

DRUGS (6)
  1. CLARITIN-D 24 HOUR [Suspect]
     Indication: UPPER RESPIRATORY TRACT CONGESTION
     Dosage: UNK UNK, BID
     Route: 048
     Dates: start: 20120301
  2. CLARITIN-D 24 HOUR [Suspect]
     Indication: EYE PRURITUS
  3. CLARITIN-D 24 HOUR [Suspect]
     Indication: SEASONAL ALLERGY
  4. CLARITIN-D 24 HOUR [Suspect]
     Indication: SNEEZING
  5. CLARITIN-D 24 HOUR [Suspect]
     Indication: SINUS DISORDER
  6. CLARITIN-D 24 HOUR [Suspect]
     Indication: COUGH

REACTIONS (4)
  - DYSPNOEA [None]
  - NO THERAPEUTIC RESPONSE [None]
  - CONDITION AGGRAVATED [None]
  - OCULAR HYPERAEMIA [None]
